FAERS Safety Report 25086254 (Version 1)
Quarter: 2025Q1

REPORT INFORMATION
  Report Type: Spontaneous
  Country: US (occurrence: None)
  Receive Date: 20250317
  Receipt Date: 20250317
  Transmission Date: 20250408
  Serious: Yes (Death, Life-Threatening)
  Sender: FDA-CTU
  Company Number: None

PATIENT
  Age: 90 Year
  Sex: Male
  Weight: 69 kg

DRUGS (1)
  1. APIXABAN [Suspect]
     Active Substance: APIXABAN
     Indication: Atrial fibrillation
     Dosage: 2.50 MG TWICE A DAY ORAL
     Route: 048
     Dates: end: 20241213

REACTIONS (7)
  - Anaemia [None]
  - Blood creatinine increased [None]
  - Fall [None]
  - Hypotension [None]
  - Rhabdomyolysis [None]
  - Syncope [None]
  - Emergency care [None]

NARRATIVE: CASE EVENT DATE: 20241213
